FAERS Safety Report 8913167 (Version 2)
Quarter: 2012Q4

REPORT INFORMATION
  Report Type: 
  Country: US (occurrence: US)
  Receive Date: 20121119
  Receipt Date: 20121207
  Transmission Date: 20130627
  Serious: Yes (Death)
  Sender: FDA-Public Use
  Company Number: PHEH2012US022526

PATIENT
  Age: 83 Year
  Sex: Female
  Weight: 63.49 kg

DRUGS (20)
  1. RECLAST [Suspect]
     Indication: OSTEOPOROSIS
     Dosage: 5 mg/100ml
     Route: 042
     Dates: end: 20120204
  2. FOLIC ACID [Concomitant]
     Route: 048
  3. ZYRTEC [Concomitant]
     Route: 048
  4. MEDROL [Concomitant]
     Route: 048
  5. TYLENOL EXTRA STRENGTH [Concomitant]
     Route: 048
  6. VITAMIN D3 [Concomitant]
     Route: 048
  7. SYNTHROID [Concomitant]
     Route: 048
  8. ASCORBIC ACID [Concomitant]
     Route: 048
  9. CALCIUM [Concomitant]
  10. VITAMIN B12 [Concomitant]
     Dosage: UNK
     Route: 048
  11. TENORMIN [Concomitant]
  12. PREDNISONE [Concomitant]
  13. DIFLUCAN [Concomitant]
     Route: 048
  14. CLINORIL [Concomitant]
     Route: 048
  15. LAXATIVE [Concomitant]
     Route: 048
  16. THERA TEARS [Concomitant]
     Route: 048
  17. PROTONIX [Concomitant]
     Route: 048
  18. NYSTATIN [Concomitant]
  19. NYSTATIN [Concomitant]
     Dosage: UNK
  20. SYSTANE [Concomitant]

REACTIONS (1)
  - Death [Fatal]
